FAERS Safety Report 15122303 (Version 2)
Quarter: 2018Q4

REPORT INFORMATION
  Report Type: Spontaneous
  Country: ES (occurrence: ES)
  Receive Date: 20180709
  Receipt Date: 20181228
  Transmission Date: 20190204
  Serious: Yes (Death, Other)
  Sender: FDA-Public Use
  Company Number: ES-MYLANLABS-2018M1048433

PATIENT
  Age: 47 Year
  Sex: Male

DRUGS (2)
  1. G-CSF [Concomitant]
     Active Substance: GRANULOCYTE COLONY-STIMULATING FACTOR NOS
     Indication: PRODUCT USED FOR UNKNOWN INDICATION
     Dosage: UNK
     Route: 065
     Dates: start: 200209
  2. IMATINIB. [Suspect]
     Active Substance: IMATINIB MESYLATE
     Indication: CHRONIC MYELOID LEUKAEMIA
     Dosage: 400 MG, UNK
     Route: 065
     Dates: start: 200209

REACTIONS (5)
  - Pancytopenia [Fatal]
  - Acute myeloid leukaemia [Fatal]
  - Chromosome analysis abnormal [Fatal]
  - Myelodysplastic syndrome [Fatal]
  - Refractory anaemia with an excess of blasts [Fatal]

NARRATIVE: CASE EVENT DATE: 200503
